FAERS Safety Report 7865276-7 (Version None)
Quarter: 2011Q4

REPORT INFORMATION
  Report Type: 
  Country: None (occurrence: None)
  Receive Date: 20111028
  Receipt Date: 20101115
  Transmission Date: 20120403
  Serious: No
  Sender: FDA-Public Use
  Company Number: US-GLAXOSMITHKLINE-A0892547A

PATIENT
  Age: 70 Year
  Sex: Male

DRUGS (4)
  1. ADVAIR DISKUS 100/50 [Suspect]
     Indication: ASTHMA
     Route: 055
     Dates: start: 20070101
  2. LEVAQUIN [Concomitant]
  3. ALBUTEROL SULFATE [Concomitant]
     Route: 065
  4. IPRATROPIUM BROMIDE [Concomitant]

REACTIONS (6)
  - NASOPHARYNGITIS [None]
  - CREPITATIONS [None]
  - PRODUCTIVE COUGH [None]
  - BRONCHITIS [None]
  - PRODUCT QUALITY ISSUE [None]
  - DYSPNOEA [None]
